FAERS Safety Report 5755751-3 (Version None)
Quarter: 2008Q2

REPORT INFORMATION
  Report Type: 
  Country: None (occurrence: None)
  Receive Date: 20080602
  Receipt Date: 20080513
  Transmission Date: 20081010
  Serious: Yes (Other)
  Sender: FDA-Public Use
  Company Number: US-BAYER-200824226NA

PATIENT
  Sex: Female

DRUGS (1)
  1. MIRENA [Suspect]
     Indication: DRUG USE FOR UNKNOWN INDICATION
     Route: 015
     Dates: start: 20080121, end: 20080125

REACTIONS (4)
  - ABDOMINAL PAIN [None]
  - PYREXIA [None]
  - RETAINED PLACENTA OR MEMBRANES [None]
  - VAGINAL HAEMORRHAGE [None]
